FAERS Safety Report 4795724-0 (Version None)
Quarter: 2005Q4

REPORT INFORMATION
  Report Type: 
  Country: None (occurrence: None)
  Receive Date: 20051012
  Receipt Date: 20050929
  Transmission Date: 20060501
  Serious: Yes (Other)
  Sender: FDA-Public Use
  Company Number: PHEH2005US10888

PATIENT
  Age: 65 Year
  Sex: Male

DRUGS (3)
  1. SANDOSTATIN LAR [Suspect]
     Indication: CARCINOID SYNDROME
     Dates: start: 20050428, end: 20050526
  2. SANDOSTATIN LAR [Suspect]
     Dosage: 20 MG, QMO
     Dates: start: 20050527, end: 20050626
  3. CHEMOTHERAPEUTICS,OTHER [Concomitant]

REACTIONS (7)
  - CATARACT [None]
  - CATARACT OPERATION [None]
  - DIZZINESS [None]
  - NAUSEA [None]
  - VISION BLURRED [None]
  - VISUAL ACUITY REDUCED [None]
  - VOMITING [None]
